FAERS Safety Report 13009228 (Version 1)
Quarter: 2016Q4

REPORT INFORMATION
  Report Type: Spontaneous
  Country: SI (occurrence: SI)
  Receive Date: 20161208
  Receipt Date: 20161208
  Transmission Date: 20170207
  Serious: Yes (Death, Hospitalization, Other)
  Sender: FDA-Public Use
  Company Number: SI-BAYER-2016-226359

PATIENT
  Age: 72 Year
  Sex: Male

DRUGS (2)
  1. XOFIGO [Suspect]
     Active Substance: RADIUM RA-223 DICHLORIDE
     Indication: HORMONE-REFRACTORY PROSTATE CANCER
     Dosage: 50 KBQ/KG
     Route: 042
  2. ANALGESICS [Concomitant]
     Active Substance: UNSPECIFIED INGREDIENT

REACTIONS (7)
  - Malignant neoplasm progression [Fatal]
  - Anaemia [None]
  - Frequent bowel movements [None]
  - Hormone-refractory prostate cancer [None]
  - General physical health deterioration [None]
  - Blood alkaline phosphatase increased [None]
  - Prostatic specific antigen increased [None]
